FAERS Safety Report 9548718 (Version 1)
Quarter: 2013Q2

REPORT INFORMATION
  Report Type: Spontaneous
  Country: US (occurrence: None)
  Receive Date: 20130627
  Receipt Date: 20130627
  Transmission Date: 20140414
  Serious: No
  Sender: FDA-Public Use
  Company Number: 1000043533

PATIENT
  Age: 74 Year
  Sex: Female

DRUGS (3)
  1. LINZESS (LINACLOTIDE) (145 MICROGRAM, CAPSULES) [Suspect]
     Indication: CONSTIPATION
     Route: 048
     Dates: start: 20130315
  2. GLUCOPHAGE (METFORMIN HYDROCHLORIDE) (METFORMIN HYDROCHLORIDE) [Concomitant]
  3. HYZAAR (HYZAAR) (HYZAAR) [Concomitant]

REACTIONS (2)
  - Diarrhoea [None]
  - Abdominal pain upper [None]
